FAERS Safety Report 19488121 (Version 2)
Quarter: 2021Q3

REPORT INFORMATION
  Report Type: Spontaneous
  Country: GB (occurrence: GB)
  Receive Date: 20210702
  Receipt Date: 20210723
  Transmission Date: 20211014
  Serious: Yes (Other)
  Sender: FDA-Public Use
  Company Number: GB-EMD SERONO-E2B_90084054

PATIENT
  Age: 54 Year
  Sex: Female
  Weight: 51 kg

DRUGS (2)
  1. LIPITOR [Suspect]
     Active Substance: ATORVASTATIN CALCIUM
     Indication: ADVERSE DRUG REACTION
     Route: 048
     Dates: start: 20210331, end: 20210528
  2. GLUCOPHAGE XR [Suspect]
     Active Substance: METFORMIN HYDROCHLORIDE
     Indication: ADVERSE DRUG REACTION
     Route: 058
     Dates: start: 20210331

REACTIONS (6)
  - Peripheral coldness [Unknown]
  - Abdominal discomfort [Recovered/Resolved]
  - Drug eruption [Not Recovered/Not Resolved]
  - Fungal skin infection [Unknown]
  - Body temperature decreased [Not Recovered/Not Resolved]
  - Abnormal loss of weight [Unknown]

NARRATIVE: CASE EVENT DATE: 20210401
